FAERS Safety Report 22031971 (Version 2)
Quarter: 2023Q2

REPORT INFORMATION
  Report Type: Spontaneous
  Country: US (occurrence: None)
  Receive Date: 20230224
  Receipt Date: 20230406
  Transmission Date: 20230722
  Serious: No
  Sender: FDA-Public Use
  Company Number: 2023A042265

PATIENT
  Sex: Male
  Weight: 83.9 kg

DRUGS (3)
  1. FASENRA [Suspect]
     Active Substance: BENRALIZUMAB
     Indication: Asthma
     Route: 058
     Dates: start: 20230126
  2. CLINDAMYCIN [Concomitant]
     Active Substance: CLINDAMYCIN
  3. DECADRON [Concomitant]
     Active Substance: DEXAMETHASONE
     Dosage: EVERY WEEK

REACTIONS (1)
  - Bacterial infection [Unknown]
